FAERS Safety Report 15781301 (Version 4)
Quarter: 2019Q1

REPORT INFORMATION
  Report Type: Spontaneous
  Country: US (occurrence: US)
  Receive Date: 20190102
  Receipt Date: 20190314
  Transmission Date: 20190417
  Serious: No
  Sender: FDA-Public Use
  Company Number: US-SA-2018SA396933

PATIENT
  Age: 70 Year
  Sex: Female

DRUGS (1)
  1. TOUJEO [Suspect]
     Active Substance: INSULIN GLARGINE
     Indication: TYPE 2 DIABETES MELLITUS
     Dosage: 20 U, QD

REACTIONS (5)
  - Extra dose administered [Unknown]
  - Overdose [Unknown]
  - Blood glucose decreased [Unknown]
  - Injection site urticaria [Unknown]
  - Device operational issue [Unknown]
